FAERS Safety Report 25237465 (Version 1)
Quarter: 2025Q2

REPORT INFORMATION
  Report Type: Spontaneous
  Country: US (occurrence: US)
  Receive Date: 20250425
  Receipt Date: 20250425
  Transmission Date: 20250717
  Serious: No
  Sender: AMGEN
  Company Number: US-AMGEN-USASP2025080265

PATIENT
  Age: 67 Year
  Sex: Female

DRUGS (1)
  1. REPATHA [Suspect]
     Active Substance: EVOLOCUMAB
     Indication: Product used for unknown indication
     Dosage: UNK, Q2WK
     Route: 065
     Dates: start: 20250323, end: 20250323

REACTIONS (6)
  - Asthma [Unknown]
  - Dyspnoea [Unknown]
  - Dysgeusia [Unknown]
  - Lip swelling [Unknown]
  - Rash [Unknown]
  - Swollen tongue [Unknown]

NARRATIVE: CASE EVENT DATE: 20250323
